FAERS Safety Report 7490376-3 (Version None)
Quarter: 2011Q2

REPORT INFORMATION
  Report Type: 
  Country: None (occurrence: None)
  Receive Date: 20110519
  Receipt Date: 20110511
  Transmission Date: 20111010
  Serious: Yes (Other)
  Sender: FDA-Public Use
  Company Number: US-BAYER-201029149NA

PATIENT
  Age: 20 Year
  Sex: Female

DRUGS (4)
  1. IUD NOS [Concomitant]
     Dates: end: 20100501
  2. ALDOMET [Concomitant]
     Indication: HYPERTENSION
     Dosage: 500 MG, BID
     Dates: start: 20101210
  3. BETASERON [Suspect]
     Indication: MULTIPLE SCLEROSIS
     Route: 058
     Dates: start: 20100415, end: 20101102
  4. LISINOPRIL [Concomitant]
     Indication: HYPERTENSION
     Dosage: UNK
     Dates: end: 20101210

REACTIONS (11)
  - BALANCE DISORDER [None]
  - MIGRAINE [None]
  - NAUSEA [None]
  - STRABISMUS [None]
  - WEIGHT DECREASED [None]
  - VITH NERVE PARALYSIS [None]
  - RETCHING [None]
  - FALL [None]
  - PAIN IN EXTREMITY [None]
  - PREGNANCY [None]
  - JOINT SPRAIN [None]
